FAERS Safety Report 10145721 (Version 4)
Quarter: 2014Q2

REPORT INFORMATION
  Report Type: Report from Study
  Country: GB (occurrence: GB)
  Receive Date: 20140501
  Receipt Date: 20140523
  Transmission Date: 20141212
  Serious: Yes (Hospitalization, Other)
  Sender: FDA-Public Use
  Company Number: GB-MILLENNIUM PHARMACEUTICALS, INC.-2014JNJ001067

PATIENT
  Sex: 0

DRUGS (11)
  1. VELCADE [Suspect]
     Indication: DIFFUSE LARGE B-CELL LYMPHOMA
     Dosage: 2 MG, UNK
     Route: 065
     Dates: start: 20131231, end: 20140409
  2. RITUXIMAB [Suspect]
     Indication: DIFFUSE LARGE B-CELL LYMPHOMA
     Dosage: 700 MG, UNK
     Route: 065
     Dates: start: 20131209, end: 20140402
  3. CYCLOPHOSPHAMIDE [Suspect]
     Indication: DIFFUSE LARGE B-CELL LYMPHOMA
     Dosage: 1400 MG, UNK
     Route: 065
     Dates: start: 20131209, end: 20140402
  4. VINCRISTINE [Suspect]
     Indication: DIFFUSE LARGE B-CELL LYMPHOMA
     Dosage: 1.5 MG, UNK
     Route: 065
     Dates: start: 20131209, end: 20140402
  5. DOXORUBICIN [Suspect]
     Indication: DIFFUSE LARGE B-CELL LYMPHOMA
     Dosage: 95 MG, UNK
     Route: 065
     Dates: start: 20131209, end: 20140402
  6. PREDNISOLONE [Suspect]
     Indication: DIFFUSE LARGE B-CELL LYMPHOMA
     Dosage: 100 MG, UNK
     Route: 065
     Dates: start: 20131209, end: 20140402
  7. ACYCLOVIR                          /00587301/ [Concomitant]
     Dosage: 800 MG, QD
     Route: 048
     Dates: start: 20130311
  8. FOLIC ACID [Concomitant]
     Dosage: 5 MG, QD
     Route: 048
  9. PROCHLORPERAZINE [Concomitant]
     Dosage: 5 MG, QD
     Route: 048
  10. CHLORPHENIRAMINE                   /00072501/ [Concomitant]
     Dosage: 10 MG, UNK
     Dates: start: 20140402, end: 20140402
  11. LENOGRASTIM [Concomitant]
     Dosage: 263 MG, UNK
     Dates: start: 20140408, end: 20140413

REACTIONS (3)
  - Fall [Recovered/Resolved]
  - Neutropenic sepsis [Recovered/Resolved]
  - Neutropenia [Recovered/Resolved]
